FAERS Safety Report 9331033 (Version 2)
Quarter: 2013Q2

REPORT INFORMATION
  Report Type: Report from Study
  Country: DE (occurrence: DE)
  Receive Date: 20130605
  Receipt Date: 20130613
  Transmission Date: 20140414
  Serious: Yes (Hospitalization)
  Sender: FDA-Public Use
  Company Number: DE-AMGEN-DEUCT2013039360

PATIENT
  Sex: Female

DRUGS (4)
  1. PANITUMUMAB [Suspect]
     Indication: CHOLANGIOCARCINOMA
     Dosage: 9.15 MG/KG, UNK
     Dates: start: 20130328, end: 20130510
  2. GEMCITABINE [Concomitant]
     Indication: CHOLANGIOCARCINOMA
     Dosage: 1011 MG/M2, UNK
     Dates: start: 20130328
  3. CISPLATIN [Concomitant]
     Indication: CHOLANGIOCARCINOMA
     Dosage: 25.19 MG/M2, UNK
     Dates: start: 20130328
  4. MORPHINE SULFATE [Concomitant]
     Dosage: UNK
     Dates: start: 20130426

REACTIONS (1)
  - Tumour pain [Not Recovered/Not Resolved]
